FAERS Safety Report 9743263 (Version 2)
Quarter: 2013Q4

REPORT INFORMATION
  Report Type: Spontaneous
  Country: US (occurrence: US)
  Receive Date: 20131210
  Receipt Date: 20131210
  Transmission Date: 20140711
  Serious: No
  Sender: FDA-Public Use
  Company Number: US-GILEAD-2009-0024984

PATIENT
  Age: 53 Year
  Sex: Female

DRUGS (6)
  1. LETAIRIS [Suspect]
     Indication: PULMONARY ARTERIAL HYPERTENSION
     Route: 048
     Dates: start: 20080915, end: 20090904
  2. COUMADIN [Concomitant]
  3. PROZAC [Concomitant]
     Indication: ANXIETY
  4. FERROUS SULFATE [Concomitant]
     Indication: ANAEMIA
  5. ZANTAC [Concomitant]
     Indication: GASTROOESOPHAGEAL REFLUX DISEASE
  6. PROVENTIL INHALER [Concomitant]
     Indication: ASTHMA

REACTIONS (1)
  - Liver function test abnormal [Recovered/Resolved]
